FAERS Safety Report 8121051-X (Version None)
Quarter: 2012Q1

REPORT INFORMATION
  Report Type: 
  Country: None (occurrence: None)
  Receive Date: 20120208
  Receipt Date: 20120128
  Transmission Date: 20120608
  Serious: Yes (Hospitalization)
  Sender: FDA-Public Use
  Company Number: CA-JNJFOC-20120201685

PATIENT
  Sex: Female
  Weight: 45 kg

DRUGS (3)
  1. REMICADE [Suspect]
     Indication: CROHN'S DISEASE
     Route: 042
     Dates: start: 20120128
  2. REMICADE [Suspect]
     Route: 042
     Dates: start: 20100101
  3. METHOTREXATE [Concomitant]
     Route: 048

REACTIONS (6)
  - ANXIETY [None]
  - COUGH [None]
  - FLUSHING [None]
  - INFUSION RELATED REACTION [None]
  - THROAT TIGHTNESS [None]
  - TREMOR [None]
